FAERS Safety Report 10458847 (Version 1)
Quarter: 2014Q3

REPORT INFORMATION
  Report Type: Spontaneous
  Country: GB (occurrence: GB)
  Receive Date: 20140917
  Receipt Date: 20140917
  Transmission Date: 20150326
  Serious: Yes (Hospitalization)
  Sender: FDA-Public Use
  Company Number: GB-MYLANLABS-2014M1004545

PATIENT

DRUGS (3)
  1. LOPERAMIDE [Concomitant]
     Active Substance: LOPERAMIDE
     Indication: DYSPEPSIA
     Route: 065
  2. OMEPRAZOLE. [Suspect]
     Active Substance: OMEPRAZOLE
     Indication: DYSPEPSIA
     Route: 065
  3. MESALAZINE [Concomitant]
     Active Substance: MESALAMINE
     Indication: DYSPEPSIA
     Route: 065

REACTIONS (2)
  - Hypocalcaemia [Recovered/Resolved]
  - Hypomagnesaemia [Recovered/Resolved]
